FAERS Safety Report 7352706-2 (Version None)
Quarter: 2011Q1

REPORT INFORMATION
  Report Type: 
  Country: None (occurrence: None)
  Receive Date: 20110310
  Receipt Date: 20110310
  Transmission Date: 20110831
  Serious: Yes (Hospitalization)
  Sender: FDA-Public Use
  Company Number: None

PATIENT
  Sex: Male

DRUGS (3)
  1. NIFEDIPINE [Concomitant]
  2. CLONIDINE [Concomitant]
  3. LEVAQUIN [Suspect]
     Indication: URINARY TRACT INFECTION
     Dosage: 250MG QDAY PO
     Route: 048
     Dates: start: 20110222, end: 20110225

REACTIONS (2)
  - AGGRESSION [None]
  - HALLUCINATION, AUDITORY [None]
